FAERS Safety Report 7744599-6 (Version None)
Quarter: 2011Q3

REPORT INFORMATION
  Report Type: 
  Country: None (occurrence: None)
  Receive Date: 20110912
  Receipt Date: 20110909
  Transmission Date: 20111222
  Serious: Yes (Other)
  Sender: FDA-Public Use
  Company Number: US-PFIZER INC-2011212796

PATIENT
  Sex: Male
  Weight: 65.306 kg

DRUGS (9)
  1. LIPITOR [Suspect]
     Indication: BLOOD CHOLESTEROL INCREASED
     Dosage: 80 MG, 1X/DAY
     Route: 048
     Dates: start: 20110712, end: 20110801
  2. DOXAZOSIN [Concomitant]
     Dosage: UNK
  3. LIPITOR [Suspect]
     Dosage: 40 MG, 1X/DAY
     Route: 048
     Dates: start: 20110804, end: 20110901
  4. TIMOLOL [Concomitant]
     Indication: GLAUCOMA
     Dosage: 1 GTT IN EACH EYE, UNK
     Route: 047
  5. TRAVATAN [Concomitant]
     Indication: GLAUCOMA
     Dosage: UNK
  6. LISINOPRIL [Concomitant]
     Dosage: UNK
  7. LIPITOR [Suspect]
     Dosage: 20 MG, UNK
     Dates: start: 20110908
  8. ATENOLOL [Concomitant]
     Dosage: UNK
  9. ACETYLSALICYLIC ACID [Concomitant]
     Dosage: 81 MG, UNK

REACTIONS (2)
  - HEART RATE IRREGULAR [None]
  - DYSPHAGIA [None]
